FAERS Safety Report 8576349-8 (Version None)
Quarter: 2012Q3

REPORT INFORMATION
  Report Type: 
  Country: None (occurrence: None)
  Receive Date: 20120807
  Receipt Date: 20120802
  Transmission Date: 20120928
  Serious: Yes (Hospitalization)
  Sender: FDA-Public Use
  Company Number: CH-ROCHE-1081313

PATIENT
  Sex: Male

DRUGS (10)
  1. BI 201335 (HCV PROTEASE INHIBITOR) [Suspect]
     Indication: HIV INFECTION
  2. TRUVADA [Concomitant]
     Indication: HIV INFECTION
     Dosage: 245/200 MG
     Route: 048
     Dates: start: 20110524
  3. COPEGUS [Suspect]
     Indication: HEPATITIS C
     Route: 048
     Dates: start: 20120104
  4. DARUNAVIR ETHANOLATE [Concomitant]
     Indication: HIV INFECTION
     Route: 048
     Dates: start: 20110519
  5. PEGASYS [Suspect]
     Indication: HEPATITIS C
     Route: 058
     Dates: start: 20120104
  6. PEGASYS [Suspect]
     Indication: HIV INFECTION
  7. EPOETIN ALFA [Concomitant]
     Indication: ANAEMIA
     Route: 058
     Dates: start: 20120120
  8. COPEGUS [Suspect]
     Indication: HIV INFECTION
  9. BI 201335 (HCV PROTEASE INHIBITOR) [Suspect]
     Indication: HEPATITIS C
     Route: 048
     Dates: start: 20120104
  10. RITONAVIR [Concomitant]
     Indication: HIV INFECTION
     Route: 048
     Dates: start: 20110519

REACTIONS (4)
  - ESCHERICHIA URINARY TRACT INFECTION [None]
  - UROSEPSIS [None]
  - PROSTATIC DISORDER [None]
  - GRANULOCYTOPENIA [None]
